FAERS Safety Report 8874450 (Version 4)
Quarter: 2013Q1

REPORT INFORMATION
  Report Type: Spontaneous
  Country: US (occurrence: US)
  Receive Date: 20121023
  Receipt Date: 20130130
  Transmission Date: 20140127
  Serious: No
  Sender: FDA-Public Use
  Company Number: US-VERTEX PHARMACEUTICAL INC.-2012-023271

PATIENT
  Age: 56 None
  Sex: Male
  Weight: 102 kg

DRUGS (8)
  1. INCIVEK [Suspect]
     Indication: HEPATITIS C
     Dosage: 750 MG, TID
     Route: 048
     Dates: start: 201209
  2. PEGASYS [Suspect]
     Indication: HEPATITIS C
     Dosage: 180 ?G, QW
     Route: 058
     Dates: start: 201209
  3. RIBAPAK [Suspect]
     Indication: HEPATITIS C
     Dosage: 600 MG, BID
     Route: 048
     Dates: start: 201209
  4. CINNAMON [Concomitant]
     Dosage: 500 MG, UNK
     Route: 048
  5. METFORMIN [Concomitant]
     Dosage: 1000 MG, UNK
     Route: 048
  6. LISINOPRIL [Concomitant]
     Dosage: 5 MG, UNK
     Route: 048
  7. LANTUS [Concomitant]
  8. CENTRUM [Concomitant]
     Route: 048

REACTIONS (12)
  - Depression [Unknown]
  - Glycosylated haemoglobin increased [Unknown]
  - Influenza like illness [Unknown]
  - Headache [Unknown]
  - Weight decreased [Unknown]
  - Irritability [Not Recovered/Not Resolved]
  - Restlessness [Not Recovered/Not Resolved]
  - Fatigue [Recovered/Resolved]
  - Diarrhoea [Not Recovered/Not Resolved]
  - Pruritus generalised [Unknown]
  - Nausea [Not Recovered/Not Resolved]
  - Dysgeusia [Unknown]
